FAERS Safety Report 6034638-5 (Version None)
Quarter: 2009Q1

REPORT INFORMATION
  Report Type: 
  Country: None (occurrence: None)
  Receive Date: 20090109
  Receipt Date: 20090109
  Transmission Date: 20090719
  Serious: Yes (Disabling)
  Sender: FDA-Public Use
  Company Number: None

PATIENT
  Sex: Male

DRUGS (15)
  1. ZOMETA [Suspect]
     Indication: MULTIPLE MYELOMA
     Dosage: 4 MG MONTHLY IV
     Route: 042
     Dates: start: 20030101, end: 20080401
  2. MEDROL [Concomitant]
  3. THALIDOMIDE [Concomitant]
  4. ACYCLOVIR [Concomitant]
  5. ASPIRIN [Concomitant]
  6. LYSINE [Concomitant]
  7. VITAMIN B-6/12 [Concomitant]
  8. CO-QIO [Concomitant]
  9. ASTELIN [Concomitant]
  10. CHLORHEXIDINE GLUCONATE [Concomitant]
  11. COMPAZINE [Concomitant]
  12. LASIX [Concomitant]
  13. ZOLOFT [Concomitant]
  14. VICADIN [Concomitant]
  15. BUPROPION HCL [Concomitant]

REACTIONS (5)
  - BONE DISORDER [None]
  - GLOSSITIS [None]
  - OSTEONECROSIS [None]
  - PATHOLOGICAL FRACTURE [None]
  - SOFT TISSUE DISORDER [None]
